FAERS Safety Report 4830013-7 (Version None)
Quarter: 2005Q4

REPORT INFORMATION
  Report Type: 
  Country: None (occurrence: None)
  Receive Date: 20051117
  Receipt Date: 20051107
  Transmission Date: 20060501
  Serious: Yes (Hospitalization)
  Sender: FDA-Public Use
  Company Number: DE-BOEHRINGER INGELHEIM PHARMACEUTICALS, INC.-2005-DE-04697DE

PATIENT

DRUGS (5)
  1. CATAPRESAN [Suspect]
     Route: 048
  2. ATOSIL [Suspect]
     Route: 048
  3. ACETAMINOPHEN [Suspect]
     Route: 048
  4. STILNOX [Suspect]
     Route: 048
  5. TAVOR [Suspect]
     Route: 048

REACTIONS (4)
  - DRUG ABUSER [None]
  - FATIGUE [None]
  - MULTIPLE DRUG OVERDOSE [None]
  - SUICIDE ATTEMPT [None]
